FAERS Safety Report 9626713 (Version 1)
Quarter: 2013Q4

REPORT INFORMATION
  Report Type: Spontaneous
  Country: US (occurrence: US)
  Receive Date: 20131016
  Receipt Date: 20131016
  Transmission Date: 20140711
  Serious: Yes (Hospitalization, Other)
  Sender: FDA-Public Use
  Company Number: US-ELI_LILLY_AND_COMPANY-US201310003233

PATIENT
  Sex: Male

DRUGS (1)
  1. EFFIENT [Suspect]
     Indication: MYOCARDIAL INFARCTION
     Dosage: 10 MG, UNKNOWN

REACTIONS (2)
  - Chest pain [Recovered/Resolved]
  - Stress [Unknown]
